FAERS Safety Report 10128258 (Version 1)
Quarter: 2014Q2

REPORT INFORMATION
  Report Type: Spontaneous
  Country: CA (occurrence: CA)
  Receive Date: 20140428
  Receipt Date: 20140428
  Transmission Date: 20141212
  Serious: Yes (Death)
  Sender: FDA-Public Use
  Company Number: CA-009507513-1404CAN013037

PATIENT
  Age: 73 Year
  Sex: Female

DRUGS (1)
  1. TEMODAL [Suspect]
     Indication: METASTATIC MALIGNANT MELANOMA
     Dosage: 335 MG, DAILYX5
     Route: 048

REACTIONS (1)
  - Death [Fatal]
